FAERS Safety Report 23937899 (Version 2)
Quarter: 2024Q2

REPORT INFORMATION
  Report Type: Report from Study
  Country: US (occurrence: US)
  Receive Date: 20240604
  Receipt Date: 20240612
  Transmission Date: 20240715
  Serious: Yes (Other)
  Sender: FDA-Public Use
  Company Number: US-TAKEDA-2022TUS038155

PATIENT
  Sex: Female
  Weight: 61 kg

DRUGS (5)
  1. VEDOLIZUMAB [Suspect]
     Active Substance: VEDOLIZUMAB
     Indication: Colitis ulcerative
     Dosage: 300 MILLIGRAM
     Route: 042
  2. VITAMINS [Concomitant]
     Active Substance: VITAMINS
     Dosage: UNK
  3. CALCIUM\VITAMIN D [Concomitant]
     Active Substance: CALCIUM\VITAMIN D
     Dosage: UNK
  4. MAGNESIUM [Concomitant]
     Active Substance: MAGNESIUM
     Dosage: UNK UNK, QD
  5. PEPCID [Concomitant]
     Active Substance: FAMOTIDINE
     Indication: Dyspepsia
     Dosage: UNK

REACTIONS (2)
  - Knee arthroplasty [Unknown]
  - Confusional state [Unknown]
